FAERS Safety Report 20118632 (Version 14)
Quarter: 2022Q2

REPORT INFORMATION
  Report Type: Other
  Country: MX (occurrence: None)
  Receive Date: 20211126
  Receipt Date: 20220429
  Transmission Date: 20220721
  Serious: Yes (Hospitalization, Disabling)
  Sender: FDA-Public Use
  Company Number: MX-ROCHE-2945379

PATIENT
  Age: 55 Year
  Sex: Female
  Weight: 127 kg

DRUGS (9)
  1. TOCILIZUMAB [Suspect]
     Active Substance: TOCILIZUMAB
     Indication: Rheumatoid arthritis
     Dosage: VIAL OF 200MG/10ML
     Route: 042
     Dates: start: 20210914, end: 202111
  2. METHOTREXATE [Concomitant]
     Active Substance: METHOTREXATE
  3. CLOPIDOGREL [Concomitant]
     Active Substance: CLOPIDOGREL BISULFATE
     Indication: COVID-19
     Dates: end: 202112
  4. HYDROCHLOROTHIAZIDE\TELMISARTAN [Concomitant]
     Active Substance: HYDROCHLOROTHIAZIDE\TELMISARTAN
     Indication: Hypertension
     Route: 048
     Dates: start: 2012
  5. HYDROCHLOROTHIAZIDE\TELMISARTAN [Concomitant]
     Active Substance: HYDROCHLOROTHIAZIDE\TELMISARTAN
     Dosage: ONLY WHEN HER BLOOD PRESSURE DOES NOT DECREASE
     Route: 048
     Dates: start: 2012
  6. LEVOTHYROXINE [Concomitant]
     Active Substance: LEVOTHYROXINE
     Indication: Hypothyroidism
  7. DIOSMIN [Concomitant]
     Active Substance: DIOSMIN
  8. ASPIRIN [Concomitant]
     Active Substance: ASPIRIN
  9. BEZAFIBRATE [Concomitant]
     Active Substance: BEZAFIBRATE

REACTIONS (84)
  - Pain in extremity [Not Recovered/Not Resolved]
  - Oedema peripheral [Not Recovered/Not Resolved]
  - Phlebitis [Not Recovered/Not Resolved]
  - Pain [Not Recovered/Not Resolved]
  - Constipation [Not Recovered/Not Resolved]
  - Urinary tract infection [Not Recovered/Not Resolved]
  - Blood pressure increased [Unknown]
  - Contusion [Recovered/Resolved]
  - Malaise [Unknown]
  - Back pain [Not Recovered/Not Resolved]
  - Pain in extremity [Not Recovered/Not Resolved]
  - Fatigue [Not Recovered/Not Resolved]
  - Pain [Unknown]
  - Arthralgia [Not Recovered/Not Resolved]
  - Phlebitis [Unknown]
  - Anxiety [Not Recovered/Not Resolved]
  - COVID-19 [Not Recovered/Not Resolved]
  - Burning sensation [Not Recovered/Not Resolved]
  - Peripheral swelling [Not Recovered/Not Resolved]
  - Vascular insufficiency [Recovered/Resolved]
  - Rash erythematous [Recovering/Resolving]
  - Arthralgia [Not Recovered/Not Resolved]
  - Neck pain [Recovered/Resolved]
  - Rash [Not Recovered/Not Resolved]
  - Pain in extremity [Recovering/Resolving]
  - Neuropathy peripheral [Unknown]
  - Arthritis [Unknown]
  - Mood altered [Not Recovered/Not Resolved]
  - Mobility decreased [Not Recovered/Not Resolved]
  - Swelling [Not Recovered/Not Resolved]
  - Inflammation [Not Recovered/Not Resolved]
  - Dysuria [Not Recovered/Not Resolved]
  - Depressed mood [Not Recovered/Not Resolved]
  - Sciatica [Not Recovered/Not Resolved]
  - Injection site pain [Not Recovered/Not Resolved]
  - Discomfort [Not Recovered/Not Resolved]
  - Vascular pain [Not Recovered/Not Resolved]
  - Vein disorder [Not Recovered/Not Resolved]
  - Gait disturbance [Not Recovered/Not Resolved]
  - Chest discomfort [Not Recovered/Not Resolved]
  - Vasculitis [Not Recovered/Not Resolved]
  - Skin striae [Not Recovered/Not Resolved]
  - Skin striae [Not Recovered/Not Resolved]
  - Arthralgia [Not Recovered/Not Resolved]
  - Eye inflammation [Recovering/Resolving]
  - Inflammation [Recovering/Resolving]
  - Eye pain [Not Recovered/Not Resolved]
  - Vision blurred [Not Recovered/Not Resolved]
  - Erythema [Recovering/Resolving]
  - Peripheral swelling [Recovering/Resolving]
  - Feeling hot [Recovering/Resolving]
  - Skin striae [Recovered/Resolved]
  - Sensitive skin [Recovering/Resolving]
  - Back pain [Recovering/Resolving]
  - Erythema [Recovering/Resolving]
  - Blindness [Recovering/Resolving]
  - Dry eye [Not Recovered/Not Resolved]
  - Chest pain [Recovering/Resolving]
  - Nasal dryness [Recovering/Resolving]
  - Increased upper airway secretion [Recovering/Resolving]
  - Hyperhidrosis [Recovering/Resolving]
  - Vulvovaginal burning sensation [Unknown]
  - Vulvovaginal discomfort [Unknown]
  - Vulvovaginal dryness [Unknown]
  - Chest pain [Recovering/Resolving]
  - Blood pressure increased [Recovered/Resolved]
  - Nervousness [Not Recovered/Not Resolved]
  - Headache [Not Recovered/Not Resolved]
  - Peripheral venous disease [Not Recovered/Not Resolved]
  - Varicose vein [Not Recovered/Not Resolved]
  - Pain in extremity [Not Recovered/Not Resolved]
  - Movement disorder [Not Recovered/Not Resolved]
  - Vasodilatation [Unknown]
  - Ocular hyperaemia [Recovered/Resolved]
  - Pain in extremity [Recovered/Resolved]
  - Vascular rupture [Recovered/Resolved]
  - Burning sensation [Not Recovered/Not Resolved]
  - Blood pressure fluctuation [Recovering/Resolving]
  - Cardiomegaly [Unknown]
  - Arrhythmia [Not Recovered/Not Resolved]
  - Angina pectoris [Not Recovered/Not Resolved]
  - Lung disorder [Not Recovered/Not Resolved]
  - Blood pressure fluctuation [Recovering/Resolving]
  - Cardiomegaly [Not Recovered/Not Resolved]

NARRATIVE: CASE EVENT DATE: 20211101
